FAERS Safety Report 5146301-3 (Version None)
Quarter: 2006Q4

REPORT INFORMATION
  Report Type: 
  Country: None (occurrence: None)
  Receive Date: 20061108
  Receipt Date: 20061025
  Transmission Date: 20070319
  Serious: Yes (Hospitalization, Other)
  Sender: FDA-Public Use
  Company Number: US-ELI_LILLY_AND_COMPANY-US200610004717

PATIENT
  Age: 70 Year
  Sex: Female

DRUGS (5)
  1. CYMBALTA [Suspect]
     Dates: start: 20061001
  2. WELLBUTRIN [Concomitant]
  3. NORTRIPTYLINE HCL [Concomitant]
  4. OXYCONTIN [Concomitant]
  5. OXYCODONE HCL [Concomitant]

REACTIONS (4)
  - CEREBROVASCULAR ACCIDENT [None]
  - CONVULSION [None]
  - LOSS OF CONSCIOUSNESS [None]
  - TRANSIENT ISCHAEMIC ATTACK [None]
